FAERS Safety Report 7765100-7 (Version None)
Quarter: 2011Q3

REPORT INFORMATION
  Report Type: 
  Country: None (occurrence: None)
  Receive Date: 20110830
  Receipt Date: 20110608
  Transmission Date: 20111222
  Serious: No
  Sender: FDA-Public Use
  Company Number: 11-0538

PATIENT
  Age: 57 Year
  Sex: Male

DRUGS (10)
  1. HYDROCODONE BITARTRATE [Concomitant]
  2. PREVACID [Concomitant]
  3. GLIMEPIRIDE [Concomitant]
  4. TRICOR /00499301/(FENOFIBRATE) [Concomitant]
  5. XEOMIN [Suspect]
     Indication: BLEPHAROSPASM
     Dosage: (50 IU,1 IN 1 TOTAL)
     Dates: start: 20110506, end: 20110506
  6. SIMVASTATIN [Concomitant]
  7. METOPROLOL TARTRATE [Concomitant]
  8. FUROSEMIDE [Concomitant]
  9. COZAAR [Concomitant]
  10. METFORMIN HCL [Concomitant]

REACTIONS (2)
  - SOMNOLENCE [None]
  - FATIGUE [None]
